FAERS Safety Report 13490826 (Version 1)
Quarter: 2017Q2

REPORT INFORMATION
  Report Type: Spontaneous
  Country: US (occurrence: US)
  Receive Date: 20170427
  Receipt Date: 20170427
  Transmission Date: 20170830
  Serious: Yes (Other)
  Sender: FDA-Public Use
  Company Number: US-AMGEN-USASP2017061111

PATIENT
  Sex: Female

DRUGS (1)
  1. PROLIA [Suspect]
     Active Substance: DENOSUMAB
     Indication: OSTEOPENIA
     Dosage: UNK
     Route: 065
     Dates: start: 201611

REACTIONS (7)
  - Impaired work ability [Unknown]
  - Arthralgia [Unknown]
  - Abasia [Unknown]
  - Off label use [Unknown]
  - Pain [Unknown]
  - Blood cholesterol increased [Unknown]
  - Bone pain [Unknown]
